FAERS Safety Report 7598827-0 (Version None)
Quarter: 2011Q3

REPORT INFORMATION
  Report Type: 
  Country: None (occurrence: None)
  Receive Date: 20110711
  Receipt Date: 20110628
  Transmission Date: 20111222
  Serious: No
  Sender: FDA-Public Use
  Company Number: US-BIOGENIDEC-2011BI023812

PATIENT
  Age: 50 Year
  Sex: Male

DRUGS (2)
  1. STEROIDS (NOS) [Concomitant]
     Indication: PREMEDICATION
  2. TYSABRI [Suspect]
     Indication: MULTIPLE SCLEROSIS
     Route: 042
     Dates: start: 20110624

REACTIONS (3)
  - HEADACHE [None]
  - FEELING HOT [None]
  - INSOMNIA [None]
